FAERS Safety Report 6551412-1 (Version None)
Quarter: 2010Q1

REPORT INFORMATION
  Report Type: 
  Country: None (occurrence: None)
  Receive Date: 20100120
  Receipt Date: 20100108
  Transmission Date: 20100710
  Serious: Yes (Hospitalization, Other)
  Sender: FDA-Public Use
  Company Number: 2009EU001536

PATIENT
  Age: 63 Year
  Sex: Male
  Weight: 59 kg

DRUGS (3)
  1. PROGRAF [Suspect]
     Dosage: 6 MG, UID/QD, ORAL; 3.5 MG, BID; 1.5 MG, BID
     Route: 048
     Dates: start: 20060615, end: 20090420
  2. CELLCEPT [Concomitant]
  3. PREDNISOLONE [Concomitant]

REACTIONS (8)
  - ACCIDENTAL OVERDOSE [None]
  - ANAEMIA [None]
  - DEHYDRATION [None]
  - DIARRHOEA [None]
  - GASTROENTERITIS [None]
  - HYPOTENSION [None]
  - RENAL FAILURE [None]
  - WEIGHT DECREASED [None]
